FAERS Safety Report 6098332-7 (Version None)
Quarter: 2009Q1

REPORT INFORMATION
  Report Type: 
  Country: None (occurrence: None)
  Receive Date: 20090302
  Receipt Date: 20090218
  Transmission Date: 20090719
  Serious: Yes (Hospitalization, Other)
  Sender: FDA-Public Use
  Company Number: US-PFIZER INC-2008047505

PATIENT
  Sex: Female

DRUGS (10)
  1. BEXTRA [Suspect]
     Indication: PAIN
     Dosage: 10 MG, 1X/DAY
     Route: 048
     Dates: start: 20060815, end: 20060904
  2. NAPROSYN [Concomitant]
     Indication: PAIN
     Dosage: UNK
  3. TEGRETOL [Concomitant]
     Indication: TRIGEMINAL NEURALGIA
     Dosage: 200 MG, 2X/DAY
  4. AUGMENTIN [Concomitant]
     Indication: OROPHARYNGEAL PAIN
  5. ACETAMINOPHEN [Concomitant]
  6. TRIAMCINOLONE ACETONIDE [Concomitant]
     Route: 061
  7. TYLENOL W/ CODEINE [Concomitant]
  8. BENADRYL [Concomitant]
     Dosage: 50 MG, UNK
     Dates: start: 20060919
  9. TORADOL [Concomitant]
     Dosage: UNK
     Dates: start: 20060919
  10. ZOFRAN [Concomitant]
     Dosage: 2 MG, UNK
     Dates: start: 20060919

REACTIONS (2)
  - ANXIETY [None]
  - STEVENS-JOHNSON SYNDROME [None]
